FAERS Safety Report 9075280 (Version 1)
Quarter: 2013Q1

REPORT INFORMATION
  Report Type: Spontaneous
  Country: JP (occurrence: JP)
  Receive Date: 20130128
  Receipt Date: 20130128
  Transmission Date: 20140127
  Serious: Yes (Other)
  Sender: FDA-Public Use
  Company Number: JP-SPECTRUM PHARMACEUTICALS, INC.-13-F-JP-00023

PATIENT
  Age: 44 Year
  Sex: Female

DRUGS (12)
  1. FLUOROURACIL [Suspect]
     Indication: RECTAL CANCER
     Dosage: UNK
     Route: 065
  2. FLUOROURACIL [Suspect]
     Indication: METASTASES TO LIVER
  3. FLUOROURACIL [Suspect]
     Indication: METASTASES TO LUNG
  4. LEUCOVORIN                         /00566701/ [Suspect]
     Indication: RECTAL CANCER
     Dosage: UNK
     Route: 065
  5. LEUCOVORIN                         /00566701/ [Suspect]
     Indication: METASTASES TO LIVER
  6. LEUCOVORIN                         /00566701/ [Suspect]
     Indication: METASTASES TO LUNG
  7. IRINOTECAN [Suspect]
     Indication: RECTAL CANCER
     Dosage: UNK
     Route: 065
  8. IRINOTECAN [Suspect]
     Indication: METASTASES TO LIVER
  9. IRINOTECAN [Suspect]
     Indication: METASTASES TO LUNG
  10. BEVACIZUMAB [Suspect]
     Indication: RECTAL CANCER
     Dosage: UNK
     Route: 065
  11. BEVACIZUMAB [Suspect]
     Indication: METASTASES TO LIVER
  12. BEVACIZUMAB [Suspect]
     Indication: METASTASES TO LUNG

REACTIONS (9)
  - Hyperammonaemia [Recovering/Resolving]
  - Renal disorder [Recovering/Resolving]
  - Oliguria [Recovering/Resolving]
  - Blood creatinine increased [Recovering/Resolving]
  - Gastrointestinal disorder [Recovering/Resolving]
  - Chills [Recovering/Resolving]
  - Pyrexia [Recovering/Resolving]
  - Depressed level of consciousness [Recovering/Resolving]
  - Ammonia increased [Recovering/Resolving]
